FAERS Safety Report 8784604 (Version 1)
Quarter: 2012Q4

REPORT INFORMATION
  Report Type: Spontaneous
  Country: US (occurrence: None)
  Receive Date: 20120906
  Receipt Date: 20120906
  Transmission Date: 20130627
  Serious: Yes (Other)
  Sender: FDA-Public Use
  Company Number: None

PATIENT
  Age: 50 Year
  Sex: Female
  Weight: 99.79 kg

DRUGS (3)
  1. SERTRALINE [Suspect]
     Indication: MAJOR DEPRESSIVE DISORDER NOS
     Dosage: (047)
     Route: 048
  2. SERTRALINE [Suspect]
     Indication: MAJOR DEPRESSIVE DISORDER NOS
     Dosage: 047
     Route: 048
  3. SERTRALINE [Suspect]
     Indication: MAJOR DEPRESSIVE DISORDER NOS
     Dosage: 047
     Route: 048

REACTIONS (2)
  - Migraine [None]
  - Product substitution issue [None]
